FAERS Safety Report 20641927 (Version 10)
Quarter: 2022Q2

REPORT INFORMATION
  Report Type: Report from Study
  Country: AT (occurrence: AT)
  Receive Date: 20220328
  Receipt Date: 20220606
  Transmission Date: 20220720
  Serious: Yes (Hospitalization)
  Sender: FDA-Public Use
  Company Number: AT-AMGEN-AUTCT2022051557

PATIENT
  Age: 3 Year
  Sex: Male

DRUGS (30)
  1. CARFILZOMIB [Suspect]
     Active Substance: CARFILZOMIB
     Indication: Acute lymphocytic leukaemia
     Dosage: 41.22 MILLIGRAM
     Route: 042
     Dates: start: 20220302
  2. VINCRISTINE [Suspect]
     Active Substance: VINCRISTINE
     Indication: Acute lymphocytic leukaemia
     Dosage: 1.1 MILLIGRAM
     Route: 065
     Dates: start: 20220302
  3. PEG/L-ASPARAGINASE [Suspect]
     Active Substance: PEGASPARGASE
     Indication: Acute lymphocytic leukaemia
     Dosage: 1840.4 UNK
     Route: 065
     Dates: start: 20220305
  4. DAUNORUBICIN [Suspect]
     Active Substance: DAUNORUBICIN
     Indication: Acute lymphocytic leukaemia
     Dosage: 44.17 MILLIGRAM
     Route: 065
     Dates: start: 20220303
  5. DEXAMETHASONE [Suspect]
     Active Substance: DEXAMETHASONE
     Indication: Acute lymphocytic leukaemia
     Dosage: 2 TO 2.5 MILLIGRAM
     Route: 065
     Dates: start: 20220302
  6. METHOTREXATE [Concomitant]
     Active Substance: METHOTREXATE
     Dosage: 12 MILLIGRAM
     Dates: start: 20220309
  7. PIPERACILLIN SODIUM\TAZOBACTAM SODIUM [Concomitant]
     Active Substance: PIPERACILLIN SODIUM\TAZOBACTAM SODIUM
     Dosage: 2 MILLIGRAM
     Route: 042
     Dates: start: 20220303, end: 20220309
  8. AMIKACIN [Concomitant]
     Active Substance: AMIKACIN
     Dosage: 300 MILLIGRAM
     Route: 042
     Dates: start: 20220225, end: 20220427
  9. ALBUMIN HUMAN [Concomitant]
     Active Substance: ALBUMIN HUMAN
     Dosage: 50-100 MILLILITER
     Route: 042
     Dates: start: 20220304, end: 20220403
  10. SUCRALAN [Concomitant]
     Dosage: 6 MILLILITER
     Dates: start: 20220302, end: 20220322
  11. KCL [Concomitant]
     Active Substance: POTASSIUM CHLORIDE
     Dosage: 1 MILLILITER
     Route: 042
     Dates: start: 20220303, end: 20220306
  12. ACETAMINOPHEN [Concomitant]
     Active Substance: ACETAMINOPHEN
     Dosage: 200 MILLIGRAM
     Route: 042
     Dates: start: 20220303, end: 20220501
  13. LASIX [Concomitant]
     Active Substance: FUROSEMIDE
     Dosage: 5 MILLIGRAM
     Route: 042
     Dates: start: 20220302, end: 20220505
  14. ZOFRAN [Concomitant]
     Active Substance: ONDANSETRON HYDROCHLORIDE
     Dosage: 4 MILLIGRAM
     Route: 042
     Dates: start: 20220301, end: 20220505
  15. SULFAMETHOXAZOLE\TRIMETHOPRIM [Concomitant]
     Active Substance: SULFAMETHOXAZOLE\TRIMETHOPRIM
     Dosage: 15 MILLILITER
     Route: 048
     Dates: start: 20210510, end: 20220308
  16. HUMATIN [Concomitant]
     Active Substance: PAROMOMYCIN SULFATE
     Dosage: 6 MILLILITER
     Route: 048
     Dates: start: 2021, end: 20220308
  17. AMPHOTERICIN B [Concomitant]
     Active Substance: AMPHOTERICIN B
     Dosage: 3 MILLILITER
     Route: 048
     Dates: start: 20210510, end: 20220308
  18. MEROPENEM [Concomitant]
     Active Substance: MEROPENEM
     Dosage: 1200-1500 MILLIGRAM
     Route: 042
     Dates: start: 20220224, end: 20220411
  19. AMBISOME [Concomitant]
     Active Substance: AMPHOTERICIN B
     Indication: Pneumonia fungal
     Dosage: 50-100 MILLIGRAM (EVERY OTHER DAY)
     Route: 042
     Dates: start: 20211231, end: 20220502
  20. ELOMEL [Concomitant]
     Dosage: 50-200 MILLILITER
     Route: 042
     Dates: start: 20220228, end: 20220303
  21. GLANDOMED [Concomitant]
     Dosage: 10 MILLILITER
     Route: 061
     Dates: start: 20220316, end: 20220316
  22. FILGRASTIM [Concomitant]
     Active Substance: FILGRASTIM
     Dosage: 100 MILLIGRAM
     Route: 042
     Dates: start: 20220228, end: 20220331
  23. DIPHENHYDRAMINE HYDROCHLORIDE [Concomitant]
     Active Substance: DIPHENHYDRAMINE HYDROCHLORIDE
     Dosage: 1 MILLILITER- 15 MILLIGRAM
     Route: 042
     Dates: start: 20220303, end: 20220428
  24. TARGOCID [Concomitant]
     Active Substance: TEICOPLANIN
     Dosage: 200-400 MILLIGRAM
     Route: 042
     Dates: start: 20220317, end: 20220504
  25. EMLA [Concomitant]
     Active Substance: LIDOCAINE\PRILOCAINE
     Dosage: 5 UNK
     Route: 061
     Dates: start: 20220301, end: 20220309
  26. ZOVIRAX [Concomitant]
     Active Substance: ACYCLOVIR
     Dosage: 6.75 MILLILITER
     Route: 048
     Dates: start: 20220302, end: 20220304
  27. PIPERACILLIN SODIUM\TAZOBACTAM SODIUM [Concomitant]
     Active Substance: PIPERACILLIN SODIUM\TAZOBACTAM SODIUM
     Dosage: 4 GRAM
     Route: 042
     Dates: start: 20220315, end: 20220319
  28. WATER FOR INJECTION [Concomitant]
     Active Substance: WATER
     Dosage: 200 MILLILITER
     Route: 042
     Dates: start: 20220303, end: 20220306
  29. CALCIUM CHLORIDE\MAGNESIUM CHLORIDE\POTASSIUM CHLORIDE\SODIUM ACETATE\ [Concomitant]
     Active Substance: CALCIUM CHLORIDE\MAGNESIUM CHLORIDE\POTASSIUM CHLORIDE\SODIUM ACETATE\SODIUM CHLORIDE
     Dosage: 50-75 MILLILITER
     Route: 042
     Dates: start: 20220228, end: 20220505
  30. MERCAPTOPURINE [Concomitant]
     Active Substance: MERCAPTOPURINE
     Dosage: 2.3 MILLILITER
     Dates: start: 20220313, end: 20220413

REACTIONS (1)
  - Pneumonia fungal [Not Recovered/Not Resolved]

NARRATIVE: CASE EVENT DATE: 20220320
